FAERS Safety Report 18466495 (Version 30)
Quarter: 2022Q1

REPORT INFORMATION
  Report Type: Spontaneous
  Country: CA (occurrence: CA)
  Receive Date: 20201104
  Receipt Date: 20220201
  Transmission Date: 20220424
  Serious: Yes (Hospitalization, Other)
  Sender: FDA-Public Use
  Company Number: CA-CELLTRION INC.-2020CA029296

PATIENT

DRUGS (24)
  1. INFLECTRA [Suspect]
     Active Substance: INFLIXIMAB-DYYB
     Indication: Colitis ulcerative
     Dosage: 500 MG WEEK 0 IN HOSPITAL, DOSE UNKNOWN;500 MG Q 2, 6 WEEKS, THEN EVERY 8 WEEKS
     Route: 042
     Dates: start: 20201008, end: 20201224
  2. INFLECTRA [Suspect]
     Active Substance: INFLIXIMAB-DYYB
     Dosage: 500 MG AT 0, 2, 6 WEEKS, THEN EVERY 8 WEEKS
     Route: 042
     Dates: start: 20201106
  3. INFLECTRA [Suspect]
     Active Substance: INFLIXIMAB-DYYB
     Dosage: 500 MG AT 0, 2, 6 WEEKS, THEN EVERY 8 WEEKS
     Route: 042
     Dates: start: 20201224
  4. INFLECTRA [Suspect]
     Active Substance: INFLIXIMAB-DYYB
     Dosage: 10 MG/KG OR 800 MG, 0, 2 AND 6 WEEKS (RE-INDUCTION) THEN EVERY 8 WEEKS
     Route: 041
     Dates: start: 20210306, end: 20210621
  5. INFLECTRA [Suspect]
     Active Substance: INFLIXIMAB-DYYB
     Dosage: 10 MG/KG OR 800 MG, 0, 2 AND 6 WEEKS (RE-INDUCTION) THEN EVERY 8 WEEKS
     Route: 041
     Dates: start: 20210319
  6. INFLECTRA [Suspect]
     Active Substance: INFLIXIMAB-DYYB
     Dosage: 10 MG/KG OR 800 MG, 0, 2 AND 6 WEEKS (RE-INDUCTION) THEN EVERY 8 WEEKS
     Route: 041
     Dates: start: 20210319
  7. INFLECTRA [Suspect]
     Active Substance: INFLIXIMAB-DYYB
     Dosage: 10 MG/KG OR 800 MG, 0, 2 AND 6 WEEKS (RE-INDUCTION) THEN EVERY 8 WEEKS
     Route: 041
     Dates: start: 20210319
  8. INFLECTRA [Suspect]
     Active Substance: INFLIXIMAB-DYYB
     Dosage: 10 MG/KG OR 800 MG, 0, 2 AND 6 WEEKS (RE-INDUCTION) THEN EVERY 8 WEEKS
     Route: 041
     Dates: start: 20210419
  9. INFLECTRA [Suspect]
     Active Substance: INFLIXIMAB-DYYB
     Dosage: 10 MG/KG OR 800 MG, 0, 2 AND 6 WEEKS (RE-INDUCTION) THEN EVERY 8 WEEKS
     Route: 041
     Dates: start: 20210514
  10. INFLECTRA [Suspect]
     Active Substance: INFLIXIMAB-DYYB
     Dosage: 10 MG/KG OR 800 MG, 0, 2 AND 6 WEEKS (RE-INDUCTION) THEN EVERY 8 WEEKS
     Route: 041
     Dates: start: 20210514
  11. INFLECTRA [Suspect]
     Active Substance: INFLIXIMAB-DYYB
     Dosage: 10 MG/KG OR 800 MG, 0, 2 AND 6 WEEKS (RE-INDUCTION) THEN EVERY 8 WEEKS
     Route: 041
     Dates: start: 20210621
  12. INFLECTRA [Suspect]
     Active Substance: INFLIXIMAB-DYYB
     Dosage: 400 MG (5 MG/KG), EVERY 4 WEEKS
     Route: 042
     Dates: start: 2021
  13. INFLECTRA [Suspect]
     Active Substance: INFLIXIMAB-DYYB
     Dosage: 400 MG (5 MG/KG), EVERY 4 WEEKS
     Route: 042
     Dates: start: 20210809, end: 20220117
  14. INFLECTRA [Suspect]
     Active Substance: INFLIXIMAB-DYYB
     Dosage: 400 MG (5 MG/KG), EVERY 4 WEEKS
     Route: 042
     Dates: start: 20210903
  15. INFLECTRA [Suspect]
     Active Substance: INFLIXIMAB-DYYB
     Dosage: 400 MG, EVERY 4 WEEKS
     Route: 042
     Dates: start: 20211029
  16. INFLECTRA [Suspect]
     Active Substance: INFLIXIMAB-DYYB
     Dosage: 400 MG, EVERY 4 WEEKS
     Route: 042
     Dates: start: 20211029
  17. INFLECTRA [Suspect]
     Active Substance: INFLIXIMAB-DYYB
     Dosage: 400 MG, EVERY 4 WEEKS
     Route: 042
     Dates: start: 20211125
  18. INFLECTRA [Suspect]
     Active Substance: INFLIXIMAB-DYYB
     Dosage: 400 MG, EVERY 4 WEEKS
     Route: 042
     Dates: start: 20211220
  19. INFLECTRA [Suspect]
     Active Substance: INFLIXIMAB-DYYB
     Dosage: 400 MG, EVERY 4 WEEKS
     Route: 042
     Dates: start: 20220117
  20. CIPROFLOXACIN [Concomitant]
     Active Substance: CIPROFLOXACIN
     Indication: Skin ulcer
     Dosage: 1 DF
     Route: 065
  21. FUROSEMIDE [Concomitant]
     Active Substance: FUROSEMIDE
     Dosage: 1 DF
     Route: 065
  22. PERINDOPRIL [Concomitant]
     Active Substance: PERINDOPRIL
     Dosage: 1 DF
     Route: 065
  23. PREDNISONE [Concomitant]
     Active Substance: PREDNISONE
     Dosage: 1 DF
     Route: 065
  24. SPIRONOLACTONE [Concomitant]
     Active Substance: SPIRONOLACTONE
     Dosage: 1 DF
     Route: 065

REACTIONS (33)
  - Cholelithiasis [Not Recovered/Not Resolved]
  - Clostridium difficile infection [Unknown]
  - Anxiety [Not Recovered/Not Resolved]
  - Depression [Not Recovered/Not Resolved]
  - Cellulitis [Unknown]
  - Infected skin ulcer [Unknown]
  - Hypokalaemia [Unknown]
  - Cholecystitis [Not Recovered/Not Resolved]
  - Dehydration [Unknown]
  - Dyspepsia [Not Recovered/Not Resolved]
  - Arthralgia [Unknown]
  - Asthenia [Unknown]
  - Gait disturbance [Unknown]
  - Fatigue [Not Recovered/Not Resolved]
  - Nausea [Unknown]
  - Pain in extremity [Unknown]
  - Myalgia [Unknown]
  - Diarrhoea [Unknown]
  - Weight decreased [Unknown]
  - Hypertension [Unknown]
  - Heart rate increased [Unknown]
  - Condition aggravated [Recovering/Resolving]
  - Incontinence [Unknown]
  - Back pain [Unknown]
  - Restlessness [Unknown]
  - Malaise [Not Recovered/Not Resolved]
  - Blood pressure decreased [Unknown]
  - Off label use [Unknown]
  - Off label use [Unknown]
  - Off label use [Unknown]
  - Incorrect dose administered [Unknown]
  - Inappropriate schedule of product administration [Unknown]
  - Product use issue [Unknown]

NARRATIVE: CASE EVENT DATE: 20200101
